FAERS Safety Report 7987624-X (Version None)
Quarter: 2011Q4

REPORT INFORMATION
  Report Type: 
  Country: None (occurrence: None)
  Receive Date: 20111216
  Receipt Date: 20101116
  Transmission Date: 20120403
  Serious: No
  Sender: FDA-Public Use
  Company Number: US-BRISTOL-MYERS SQUIBB COMPANY-15251325

PATIENT
  Age: 77 Year
  Sex: Female

DRUGS (10)
  1. DIOVAN [Concomitant]
     Dosage: 1 TABS
  2. NIACIN [Concomitant]
     Dosage: FLUSH FREE NIACIN TAKEN WITH MEAL
  3. FOSAMAX [Concomitant]
     Dosage: LIQUID
  4. ASPIRIN [Concomitant]
  5. ABILIFY [Suspect]
     Indication: DEPRESSION
     Dosage: ABILIFY DISCMELTS,ABILIFY ODT TAB 10 MG BLISTER 30US
     Route: 060
  6. VITAMIN D [Concomitant]
     Dosage: 6DF=1000 IU 6 TABS
  7. RISPERIDONE [Concomitant]
     Dosage: 1DF= 1 TAB AT BEDTIME
  8. KLONOPIN [Concomitant]
     Dosage: 1DF=0.5MG 3 TABS IN THE MORNING + 1 TAB AT NIGHT
  9. ZOLOFT [Concomitant]
     Dosage: 1DF=50MG 3 TABS IN THE MORNING + 1 TAB AT NIGHT
  10. NEXIUM [Concomitant]
     Dosage: 1 TAB

REACTIONS (2)
  - ABDOMINAL DISCOMFORT [None]
  - FATIGUE [None]
